FAERS Safety Report 6482999-5 (Version None)
Quarter: 2009Q4

REPORT INFORMATION
  Report Type: 
  Country: None (occurrence: None)
  Receive Date: 20091209
  Receipt Date: 20091016
  Transmission Date: 20100525
  Serious: No
  Sender: FDA-Public Use
  Company Number: US-KINGPHARMUSA00001-K200901287

PATIENT
  Age: 59 Year
  Sex: Female
  Weight: 74.83 kg

DRUGS (5)
  1. EMBEDA [Suspect]
     Indication: NECK PAIN
     Dosage: 20 MG, QD
     Route: 048
     Dates: start: 20091015
  2. ZANTAC [Concomitant]
     Indication: GASTROOESOPHAGEAL REFLUX DISEASE
     Dosage: 300 MG, BID
     Route: 048
  3. FLUOXETINE [Concomitant]
     Indication: DEPRESSION
     Dosage: 20 MG, QD
     Route: 048
  4. VITAMINS [Concomitant]
     Dosage: UNK
  5. LIPITOR [Concomitant]
     Indication: BLOOD CHOLESTEROL INCREASED
     Dosage: UNK

REACTIONS (2)
  - DYSPEPSIA [None]
  - ERUCTATION [None]
